FAERS Safety Report 9845541 (Version 6)
Quarter: 2017Q1

REPORT INFORMATION
  Report Type: Report from Study
  Country: CA (occurrence: CA)
  Receive Date: 20140127
  Receipt Date: 20170306
  Transmission Date: 20170429
  Serious: Yes (Hospitalization)
  Sender: FDA-Public Use
  Company Number: CA-INCYTE CORPORATION-2013IN000482

PATIENT
  Age: 77 Year
  Sex: Female

DRUGS (5)
  1. JAKAVI [Suspect]
     Active Substance: RUXOLITINIB
     Dosage: 15 MG, BID
     Route: 048
  2. EPREX [Concomitant]
     Active Substance: ERYTHROPOIETIN
     Indication: PRODUCT USED FOR UNKNOWN INDICATION
  3. SYNTHROID [Concomitant]
     Active Substance: LEVOTHYROXINE SODIUM
     Indication: THYROID DISORDER
     Route: 065
  4. JAKAVI [Suspect]
     Active Substance: RUXOLITINIB
     Indication: MYELOFIBROSIS
     Dosage: 20 MG, BID
     Route: 048
     Dates: start: 20130114
  5. JAKAVI [Suspect]
     Active Substance: RUXOLITINIB
     Dosage: 20 MG EVERY MORNING AND 15 MG EVERY SLEEPING HOUR
     Route: 048
     Dates: start: 20130618

REACTIONS (12)
  - Memory impairment [Unknown]
  - Blood glucose increased [Unknown]
  - Urinary tract infection [Unknown]
  - Cystitis [Unknown]
  - Weight increased [Unknown]
  - Fall [Unknown]
  - Increased appetite [Unknown]
  - Amnesia [Unknown]
  - Loss of consciousness [Unknown]
  - Hunger [Unknown]
  - Anaemia [Unknown]
  - Fatigue [Unknown]

NARRATIVE: CASE EVENT DATE: 20131231
